FAERS Safety Report 25510681 (Version 1)
Quarter: 2025Q3

REPORT INFORMATION
  Report Type: Spontaneous
  Country: CN (occurrence: CN)
  Receive Date: 20250703
  Receipt Date: 20250703
  Transmission Date: 20251020
  Serious: Yes (Other)
  Sender: BAYER HEALTHCARE PHARMACEUTICALS INC.
  Company Number: CN-BAYER-2025A087820

PATIENT
  Age: 71 Year
  Sex: Male
  Weight: 77.5 kg

DRUGS (2)
  1. GLUCOBAY [Suspect]
     Active Substance: ACARBOSE
     Indication: Type 2 diabetes mellitus
     Dosage: 100 MG, TID
     Route: 048
     Dates: start: 20250620, end: 20250625
  2. LINAGLIPTIN [Suspect]
     Active Substance: LINAGLIPTIN
     Indication: Type 2 diabetes mellitus
     Dosage: 5 MG, QD
     Route: 048
     Dates: start: 20250619, end: 20250625

REACTIONS (1)
  - Eyelid oedema [Recovering/Resolving]

NARRATIVE: CASE EVENT DATE: 20250622
